FAERS Safety Report 5500999-6 (Version None)
Quarter: 2007Q4

REPORT INFORMATION
  Report Type: 
  Country: None (occurrence: None)
  Receive Date: 20071029
  Receipt Date: 20071023
  Transmission Date: 20080405
  Serious: Yes (Hospitalization)
  Sender: FDA-Public Use
  Company Number: PHRM2007FR02444

PATIENT
  Age: 93 Year
  Sex: Female

DRUGS (7)
  1. LASIX [Suspect]
     Dosage: 20 MG, QD
     Route: 048
     Dates: start: 20070901, end: 20071004
  2. TANAKAN [Concomitant]
  3. TANGANIL [Concomitant]
  4. TARDYFERON [Concomitant]
  5. DUPHALAC [Concomitant]
  6. JOUVENCE DE L'ABBE SOURY [Concomitant]
  7. COTAREG [Suspect]
     Dosage: 1 DF, QD
     Route: 048
     Dates: start: 20070901

REACTIONS (4)
  - ASTHENIA [None]
  - DRUG INTERACTION [None]
  - HAEMOGLOBIN DECREASED [None]
  - HYPONATRAEMIA [None]
